FAERS Safety Report 20297178 (Version 1)
Quarter: 2022Q1

REPORT INFORMATION
  Report Type: Spontaneous
  Country: US (occurrence: US)
  Receive Date: 20220105
  Receipt Date: 20220105
  Transmission Date: 20220424
  Serious: No
  Sender: FDA-Public Use
  Company Number: US-GSKCCFUS-Case-01255762_AE-73516

PATIENT
  Sex: Male

DRUGS (1)
  1. NUCALA [Suspect]
     Active Substance: MEPOLIZUMAB
     Indication: Product used for unknown indication
     Dosage: 1 DF
     Dates: start: 202106

REACTIONS (3)
  - Wrong technique in device usage process [Unknown]
  - Underdose [Unknown]
  - Accidental exposure to product [Unknown]
